FAERS Safety Report 18456647 (Version 1)
Quarter: 2020Q4

REPORT INFORMATION
  Report Type: Spontaneous
  Country: US (occurrence: US)
  Receive Date: 20201103
  Receipt Date: 20201103
  Transmission Date: 20210114
  Serious: Yes (Other)
  Sender: FDA-Public Use
  Company Number: US-LUPIN PHARMACEUTICALS INC.-2020-08385

PATIENT
  Age: 80 Year
  Sex: Male

DRUGS (6)
  1. IMATINIB MESYLATE. [Suspect]
     Active Substance: IMATINIB MESYLATE
     Indication: GASTROINTESTINAL STROMAL TUMOUR
     Dosage: 400 MILLIGRAM, QD
     Route: 065
     Dates: end: 201606
  2. ASPIRIN [ACETYLSALICYLIC ACID] [Concomitant]
     Active Substance: ASPIRIN
     Indication: PRODUCT USED FOR UNKNOWN INDICATION
     Dosage: UNK
     Route: 065
  3. IMATINIB MESYLATE. [Suspect]
     Active Substance: IMATINIB MESYLATE
     Indication: ADJUVANT THERAPY
     Dosage: 400 MILLIGRAM, QD
     Route: 065
     Dates: start: 201707
  4. LEVOTHYROXINE. [Concomitant]
     Active Substance: LEVOTHYROXINE
     Indication: PRODUCT USED FOR UNKNOWN INDICATION
     Dosage: UNK
     Route: 065
  5. IMATINIB MESYLATE. [Suspect]
     Active Substance: IMATINIB MESYLATE
     Indication: RECURRENT CANCER
     Dosage: 800 MILLIGRAM, QD
     Route: 065
     Dates: start: 201809
  6. BCG [Concomitant]
     Active Substance: BCG VACCINE
     Indication: BLADDER CANCER RECURRENT
     Dosage: UNK
     Route: 065

REACTIONS (1)
  - Pemphigus [Not Recovered/Not Resolved]
